FAERS Safety Report 9519198 (Version 1)
Quarter: 2013Q3

REPORT INFORMATION
  Report Type: Spontaneous
  Country: US (occurrence: None)
  Receive Date: 20130911
  Receipt Date: 20130911
  Transmission Date: 20140515
  Serious: Yes (Life-Threatening)
  Sender: FDA-Public Use
  Company Number: None

PATIENT
  Age: 66 Year
  Sex: Male
  Weight: 68.04 kg

DRUGS (1)
  1. CYMBALTA [Suspect]
     Indication: DEPRESSION
     Dosage: ONE CAPSULE DAILY WITH A MEAL, ONCE DAILY, TAKEN BY MOUTH
     Dates: start: 20130816, end: 20130910

REACTIONS (1)
  - Hypoglycaemia [None]
